FAERS Safety Report 5474209-2 (Version None)
Quarter: 2007Q4

REPORT INFORMATION
  Report Type: 
  Country: None (occurrence: None)
  Receive Date: 20071002
  Receipt Date: 20070711
  Transmission Date: 20080405
  Serious: No
  Sender: FDA-Public Use
  Company Number: US-ASTRAZENECA-2007UW13225

PATIENT
  Age: 768 Month
  Sex: Female
  Weight: 90.7 kg

DRUGS (4)
  1. ARIMIDEX [Suspect]
     Indication: BREAST CANCER
     Route: 048
     Dates: start: 20070509
  2. ATENOLOL [Concomitant]
     Route: 048
  3. PREVACID [Concomitant]
  4. LIPITOR [Concomitant]

REACTIONS (2)
  - BONE PAIN [None]
  - MUSCULAR WEAKNESS [None]
